FAERS Safety Report 14523806 (Version 1)
Quarter: 2018Q1

REPORT INFORMATION
  Report Type: Report from Study
  Country: DE (occurrence: DE)
  Receive Date: 20180213
  Receipt Date: 20180213
  Transmission Date: 20180509
  Serious: Yes (Other)
  Sender: FDA-Public Use
  Company Number: DE-ROCHE-1811377

PATIENT
  Age: 46 Year
  Sex: Female
  Weight: 59.3 kg

DRUGS (5)
  1. ACE INHIBITOR (RO 31-2201) [Concomitant]
     Active Substance: INVESTIGATIONAL PRODUCT
     Indication: HYPERTENSION
     Route: 065
     Dates: start: 201306
  2. BEVACIZUMAB. [Suspect]
     Active Substance: BEVACIZUMAB
     Indication: BREAST CANCER
     Route: 065
     Dates: start: 20130524, end: 20130524
  3. BEVACIZUMAB. [Suspect]
     Active Substance: BEVACIZUMAB
     Route: 065
     Dates: start: 20130802, end: 20130802
  4. PACLITAXEL. [Concomitant]
     Active Substance: PACLITAXEL
     Indication: BREAST CANCER
     Dosage: FURTHER DOSES: 31/MAY/2013, 07/JUN/2013, 14/JUN/2013, 21/JUN/2013, 19/JUL/2013 AND 02/AUG/2013
     Route: 065
     Dates: start: 20130524
  5. RAMIPRIL. [Concomitant]
     Active Substance: RAMIPRIL
     Route: 065
     Dates: start: 201306

REACTIONS (1)
  - Metastases to bone [Not Recovered/Not Resolved]

NARRATIVE: CASE EVENT DATE: 20130806
